FAERS Safety Report 18898511 (Version 1)
Quarter: 2021Q1

REPORT INFORMATION
  Report Type: Spontaneous
  Country: US (occurrence: US)
  Receive Date: 20210216
  Receipt Date: 20210216
  Transmission Date: 20210420
  Serious: No
  Sender: FDA-Public Use
  Company Number: US-TAKEDA-2021TUS008091

PATIENT
  Sex: Female
  Weight: 68 kg

DRUGS (16)
  1. PANTOPRAZOLE [Concomitant]
     Active Substance: PANTOPRAZOLE
     Indication: ABDOMINAL DISCOMFORT
     Route: 065
  2. GABAPENTIN. [Concomitant]
     Active Substance: GABAPENTIN
     Indication: MULTIPLE SCLEROSIS
     Route: 065
  3. PROVIGIL [CHORIONIC GONADOTROPHIN] [Concomitant]
     Active Substance: GONADOTROPHIN, CHORIONIC
     Indication: INSOMNIA
     Route: 065
  4. BUSPIRONE [Concomitant]
     Active Substance: BUSPIRONE HYDROCHLORIDE
     Indication: PRODUCT USED FOR UNKNOWN INDICATION
     Route: 065
  5. BIOTIN [Concomitant]
     Active Substance: BIOTIN
     Indication: ALOPECIA
     Route: 065
  6. VITAMIN B12 [Concomitant]
     Active Substance: CYANOCOBALAMIN
     Indication: METABOLIC SURGERY
     Route: 065
  7. MVI [VITAMINS NOS] [Concomitant]
     Indication: METABOLIC SURGERY
     Route: 065
  8. CALCIUM [Concomitant]
     Active Substance: CALCIUM
     Indication: METABOLIC SURGERY
     Route: 065
  9. IRON [Concomitant]
     Active Substance: IRON
     Indication: CONSTIPATION
     Dosage: 1/4
     Route: 065
  10. MOTEGRITY [Suspect]
     Active Substance: PRUCALOPRIDE SUCCINATE
     Indication: ULCER
  11. LEVOTHYROXINE. [Concomitant]
     Active Substance: LEVOTHYROXINE
     Indication: THYROID DISORDER
     Route: 065
  12. OZEMPIC [Concomitant]
     Active Substance: SEMAGLUTIDE
     Indication: WEIGHT
     Route: 065
  13. CRANBERRY [VACCINIUM MACROCARPON] [Concomitant]
     Active Substance: CRANBERRY
     Indication: URINARY TRACT INFECTION
     Route: 065
  14. MOTEGRITY [Suspect]
     Active Substance: PRUCALOPRIDE SUCCINATE
     Indication: CONSTIPATION
     Dosage: 2 MILLIGRAM, QD
     Route: 065
     Dates: start: 202010
  15. TOPAMAX [Concomitant]
     Active Substance: TOPIRAMATE
     Indication: MULTIPLE SCLEROSIS
     Route: 065
  16. CYCLOBENZAPRINE. [Concomitant]
     Active Substance: CYCLOBENZAPRINE
     Indication: MULTIPLE SCLEROSIS
     Route: 065

REACTIONS (8)
  - Weight decreased [Unknown]
  - Constipation [Unknown]
  - Prolapse [Unknown]
  - Alopecia [Unknown]
  - Pain [Unknown]
  - Product dose omission issue [Unknown]
  - Hunger [Unknown]
  - Insomnia [Unknown]
